FAERS Safety Report 12800293 (Version 1)
Quarter: 2016Q3

REPORT INFORMATION
  Report Type: Spontaneous
  Country: US (occurrence: US)
  Receive Date: 20160930
  Receipt Date: 20160930
  Transmission Date: 20161109
  Serious: Yes (Hospitalization)
  Sender: FDA-Public Use
  Company Number: US-BRISTOL-MYERS SQUIBB COMPANY-BMS-2016-078915

PATIENT
  Sex: Male
  Weight: 68.93 kg

DRUGS (1)
  1. NULOJIX [Suspect]
     Active Substance: BELATACEPT
     Indication: RENAL TRANSPLANT
     Route: 042
     Dates: start: 201410

REACTIONS (5)
  - Pyrexia [Unknown]
  - Asthenia [Unknown]
  - Weight decreased [Unknown]
  - Cough [Unknown]
  - Viral infection [Unknown]
